FAERS Safety Report 13252497 (Version 1)
Quarter: 2017Q1

REPORT INFORMATION
  Report Type: Spontaneous
  Country: US (occurrence: US)
  Receive Date: 20170220
  Receipt Date: 20170220
  Transmission Date: 20170428
  Serious: No
  Sender: FDA-Public Use
  Company Number: US-COLLEGIUM PHARMACEUTICAL, INC.-2016CGM00037

PATIENT
  Age: 57 Year
  Sex: Female

DRUGS (2)
  1. IR ROXICODONE [Concomitant]
  2. XTAMPZA ER [Suspect]
     Active Substance: OXYCODONE
     Dosage: 2 TABLETS, 4X/DAY
     Dates: start: 20161019, end: 2016

REACTIONS (2)
  - Diarrhoea haemorrhagic [Unknown]
  - Drug ineffective [Unknown]

NARRATIVE: CASE EVENT DATE: 201610
